FAERS Safety Report 11944122 (Version 1)
Quarter: 2016Q1

REPORT INFORMATION
  Report Type: Spontaneous
  Country: US (occurrence: US)
  Receive Date: 20160125
  Receipt Date: 20160125
  Transmission Date: 20160526
  Serious: No
  Sender: FDA-Public Use
  Company Number: US-UNITED THERAPEUTICS-UNT-2015-005555

PATIENT
  Sex: Female
  Weight: 86.17 kg

DRUGS (3)
  1. REMODULIN [Suspect]
     Active Substance: TREPROSTINIL
     Dosage: 0.014 ?G/KG/MIN, CONTINUING
     Route: 058
  2. REMODULIN [Suspect]
     Active Substance: TREPROSTINIL
     Dosage: 0.004 ?G/KG/MIN, CONTINUING
     Route: 058
     Dates: start: 20150506
  3. REMODULIN [Suspect]
     Active Substance: TREPROSTINIL
     Indication: PULMONARY ARTERIAL HYPERTENSION
     Dosage: 0.004 ?G/KG/MIN, CONTINUING
     Route: 058
     Dates: start: 20150504

REACTIONS (12)
  - Fatigue [Unknown]
  - Pain in extremity [Unknown]
  - Migraine [Unknown]
  - Infusion site pain [Unknown]
  - Flushing [Unknown]
  - Headache [Unknown]
  - Arthralgia [Unknown]
  - Infusion site oedema [Unknown]
  - Dizziness [Unknown]
  - Myalgia [Unknown]
  - Infusion site erythema [Unknown]
  - Infusion site haemorrhage [Unknown]

NARRATIVE: CASE EVENT DATE: 2015
